FAERS Safety Report 16557216 (Version 2)
Quarter: 2019Q3

REPORT INFORMATION
  Report Type: Spontaneous
  Country: BR (occurrence: BR)
  Receive Date: 20190711
  Receipt Date: 20190726
  Transmission Date: 20191004
  Serious: Yes (Hospitalization)
  Sender: FDA-Public Use
  Company Number: BR-CELGENEUS-BRA-20190701434

PATIENT
  Age: 77 Year
  Sex: Female

DRUGS (2)
  1. VIDAZA [Suspect]
     Active Substance: AZACITIDINE
     Indication: MYELODYSPLASTIC SYNDROME
     Route: 058
     Dates: start: 20180416
  2. VIDAZA [Suspect]
     Active Substance: AZACITIDINE
     Route: 058

REACTIONS (2)
  - Arrhythmia [Unknown]
  - Malaise [Unknown]

NARRATIVE: CASE EVENT DATE: 20190630
